FAERS Safety Report 6496520-9 (Version None)
Quarter: 2009Q4

REPORT INFORMATION
  Report Type: 
  Country: None (occurrence: None)
  Receive Date: 20091210
  Receipt Date: 20091130
  Transmission Date: 20100525
  Serious: Yes (Hospitalization, Other)
  Sender: FDA-Public Use
  Company Number: ADR52622009

PATIENT
  Age: 27 Year
  Sex: Female

DRUGS (11)
  1. RISPERIDONE [Suspect]
     Indication: SCHIZOAFFECTIVE DISORDER
     Dosage: 50 MG, 1 DAYS 37.5 MG 50 MG
     Route: 030
     Dates: start: 20060926, end: 20061026
  2. RISPERIDONE [Suspect]
     Indication: SCHIZOAFFECTIVE DISORDER
     Dosage: 50 MG, 1 DAYS 37.5 MG 50 MG
     Route: 030
     Dates: start: 20061026, end: 20070101
  3. RISPERIDONE [Suspect]
     Indication: SCHIZOAFFECTIVE DISORDER
     Dosage: 50 MG, 1 DAYS 37.5 MG 50 MG
     Route: 030
     Dates: start: 20070101, end: 20070412
  4. CHLORPROMAZINE [Concomitant]
  5. CITALOPRAM HYDROBROMIDE [Concomitant]
  6. DIAZEPAM [Concomitant]
  7. ESCITALPRAM [Concomitant]
  8. GLATIRAMER ACETATE [Concomitant]
  9. METFORMIN [Concomitant]
  10. PROCYCLIDINE HYDROCHLORIDE 2MG TAB [Concomitant]
  11. QUETIAPINE [Concomitant]

REACTIONS (10)
  - ALCOHOL USE [None]
  - BLOOD PRESSURE INCREASED [None]
  - CHEST PAIN [None]
  - CONVULSION [None]
  - DRUG ABUSE [None]
  - DYSPNOEA [None]
  - ORTHOSTATIC HYPOTENSION [None]
  - PSYCHOTIC DISORDER [None]
  - SEDATION [None]
  - SINUS TACHYCARDIA [None]
